FAERS Safety Report 4431777-7 (Version None)
Quarter: 2004Q3

REPORT INFORMATION
  Report Type: 
  Country: None (occurrence: None)
  Receive Date: 20040818
  Receipt Date: 20420812
  Transmission Date: 20050211
  Serious: No
  Sender: FDA-Public Use
  Company Number: 2004-119335-NL

PATIENT
  Age: 68 Year
  Sex: Female

DRUGS (8)
  1. DANAPAROID SODIUM [Suspect]
     Indication: DISSEMINATED INTRAVASCULAR COAGULATION
     Dosage: 2500 ANTI_XA INTRAVENOUS (NOS)
     Route: 042
     Dates: start: 20031029, end: 20031102
  2. SIVELESTAT [Concomitant]
  3. CEFEPIME [Concomitant]
  4. FLUCONAZOLE [Concomitant]
  5. PREDNISOLONE [Concomitant]
  6. SULPERAZON [Concomitant]
  7. ARBEKACIN [Concomitant]
  8. IMMUNE GLOBULIN INTRAVENOUS (HUMAN) [Concomitant]

REACTIONS (4)
  - BLOOD BILIRUBIN INCREASED [None]
  - BLOOD CREATININE INCREASED [None]
  - BLOOD LACTATE DEHYDROGENASE INCREASED [None]
  - BLOOD UREA INCREASED [None]
